FAERS Safety Report 13227520 (Version 1)
Quarter: 2017Q1

REPORT INFORMATION
  Report Type: Spontaneous
  Country: DE (occurrence: DE)
  Receive Date: 20170213
  Receipt Date: 20170213
  Transmission Date: 20170428
  Serious: Yes (Other)
  Sender: FDA-Public Use
  Company Number: GXKR2017DE001076

PATIENT
  Sex: Male

DRUGS (3)
  1. QUETIAPINE ? 1 A PHARMA [Suspect]
     Active Substance: QUETIAPINE
     Dosage: 300 MG, QHS, FOR YEARS
     Route: 048
     Dates: end: 2015
  2. QUETIAPINE ? 1 A PHARMA [Suspect]
     Active Substance: QUETIAPINE
     Indication: PRODUCT USED FOR UNKNOWN INDICATION
     Dosage: 400 MG IN THE EVENING FOR YEARS
     Route: 048
  3. QUETIAPINE ? 1 A PHARMA [Suspect]
     Active Substance: QUETIAPINE
     Dosage: ADDED 400 MG IN THE MORNING
     Route: 048

REACTIONS (1)
  - Mental disorder [Unknown]
